FAERS Safety Report 11441962 (Version 4)
Quarter: 2016Q1

REPORT INFORMATION
  Report Type: Spontaneous
  Country: US (occurrence: US)
  Receive Date: 20150901
  Receipt Date: 20160225
  Transmission Date: 20160525
  Serious: Yes (Other)
  Sender: FDA-Public Use
  Company Number: US-PFIZER INC-2014353888

PATIENT
  Age: 71 Year
  Sex: Male
  Weight: 100 kg

DRUGS (9)
  1. INLYTA [Suspect]
     Active Substance: AXITINIB
     Dosage: 5 MG, UNK
     Route: 048
     Dates: start: 2015
  2. INLYTA [Suspect]
     Active Substance: AXITINIB
     Dosage: 6 MG, 2X/DAY
     Route: 048
  3. INLYTA [Suspect]
     Active Substance: AXITINIB
     Dosage: 5 MG, DAILY
     Route: 048
     Dates: start: 20160217
  4. INLYTA [Suspect]
     Active Substance: AXITINIB
     Dosage: 7 MG, 2X/DAY
     Route: 048
  5. INLYTA [Suspect]
     Active Substance: AXITINIB
     Dosage: 5 MG, 1X/DAY
     Route: 048
  6. INLYTA [Suspect]
     Active Substance: AXITINIB
     Dosage: 3 TABLETS (1 MG) DAILY (DOSE 5MG +3MG = 8 MG)
     Dates: start: 20160217
  7. INLYTA [Suspect]
     Active Substance: AXITINIB
     Dosage: 12 MG, DAILY
     Route: 048
     Dates: start: 201501
  8. INLYTA [Suspect]
     Active Substance: AXITINIB
     Indication: METASTATIC RENAL CELL CARCINOMA
     Dosage: 5 MG, 2X/DAY
     Route: 048
     Dates: start: 201412
  9. INLYTA [Suspect]
     Active Substance: AXITINIB
     Dosage: 7 MG, UNK
     Route: 048
     Dates: start: 2015

REACTIONS (6)
  - Hypertension [Recovered/Resolved]
  - Pain in extremity [Recovered/Resolved]
  - Burning sensation [Recovered/Resolved]
  - Hyperthyroidism [Unknown]
  - Blister [Unknown]
  - Aphonia [Unknown]
